FAERS Safety Report 4523097-7 (Version None)
Quarter: 2004Q4

REPORT INFORMATION
  Report Type: 
  Country: None (occurrence: None)
  Receive Date: 20041207
  Receipt Date: 20041207
  Transmission Date: 20050328
  Serious: Yes (Other)
  Sender: FDA-Public Use
  Company Number: None

PATIENT
  Age: 65 Year
  Sex: Female
  Weight: 68.9467 kg

DRUGS (11)
  1. AVASTIN [Suspect]
     Indication: COLON CANCER
     Dosage: 340 MG IVPB QOW
     Dates: start: 20040907
  2. AVASTIN [Suspect]
     Indication: COLON CANCER
     Dosage: 340 MG IVPB QOW
     Dates: start: 20040920
  3. AVASTIN [Suspect]
     Indication: COLON CANCER
     Dosage: 340 MG IVPB QOW
     Dates: start: 20041005
  4. AVASTIN [Suspect]
     Indication: COLON CANCER
     Dosage: 340 MG IVPB QOW
     Dates: start: 20041018
  5. AVASTIN [Suspect]
     Indication: COLON CANCER
     Dosage: 340 MG IVPB QOW
     Dates: start: 20041101
  6. AVASTIN [Suspect]
     Indication: COLON CANCER
     Dosage: 340 MG IVPB QOW
     Dates: start: 20041115
  7. CAMPTOSAR W/ AVASTIN [Concomitant]
  8. LEUCOVORIN [Concomitant]
  9. FLUOROURACIL [Concomitant]
  10. NEULASTA [Concomitant]
  11. PROCRIT [Concomitant]

REACTIONS (5)
  - FEELING HOT [None]
  - FLUSHING [None]
  - INFUSION RELATED REACTION [None]
  - PALPITATIONS [None]
  - SPEECH DISORDER [None]
